FAERS Safety Report 14988783 (Version 1)
Quarter: 2018Q2

REPORT INFORMATION
  Report Type: Report from Study
  Country: JP (occurrence: JP)
  Receive Date: 20180608
  Receipt Date: 20180608
  Transmission Date: 20180711
  Serious: Yes (Hospitalization)
  Sender: FDA-Public Use
  Company Number: JP-PFIZER INC-2018226895

PATIENT
  Age: 39 Year
  Sex: Female

DRUGS (14)
  1. ONEALFA [Concomitant]
     Active Substance: ALFACALCIDOL
     Route: 048
  2. XELJANZ [Suspect]
     Active Substance: TOFACITINIB CITRATE
     Indication: RHEUMATOID ARTHRITIS
     Dosage: 5 MG, 2X/DAY
     Route: 048
     Dates: start: 20170818
  3. FOLIAMIN [Concomitant]
     Active Substance: FOLIC ACID
     Route: 048
  4. KOLBET [Concomitant]
     Active Substance: IGURATIMOD
     Dosage: UNK
     Dates: start: 20171128
  5. PREDNISOLONE. [Concomitant]
     Active Substance: PREDNISOLONE
     Dosage: 6 MG, DAILY
     Route: 048
     Dates: start: 20170915, end: 20171115
  6. PREDNISOLONE. [Concomitant]
     Active Substance: PREDNISOLONE
     Dosage: 4 MG, DAILY
     Route: 048
     Dates: start: 20180206
  7. METHOTREXATE SODIUM. [Concomitant]
     Active Substance: METHOTREXATE SODIUM
     Dosage: 12 MG, WEEKLY
     Dates: end: 20171117
  8. PREDNISOLONE. [Concomitant]
     Active Substance: PREDNISOLONE
     Dosage: 7 MG, DAILY
     Route: 048
     Dates: start: 20170502, end: 20170915
  9. METHOTREXATE SODIUM. [Concomitant]
     Active Substance: METHOTREXATE SODIUM
     Dosage: 8 MG, WEEKLY
     Dates: start: 20180313
  10. PREDNISOLONE. [Concomitant]
     Active Substance: PREDNISOLONE
     Dosage: 5 MG, DAILY
     Route: 048
     Dates: start: 20171115, end: 20180206
  11. HYALEIN [Concomitant]
     Active Substance: HYALURONATE SODIUM
     Dosage: UNK
     Route: 047
     Dates: start: 20171117
  12. METHOTREXATE SODIUM. [Concomitant]
     Active Substance: METHOTREXATE SODIUM
     Dosage: 10 MG, WEEKLY
     Dates: start: 20171117, end: 20180313
  13. THYRADIN [Concomitant]
     Active Substance: LEVOTHYROXINE
     Route: 048
  14. ISODINE [Concomitant]
     Active Substance: POVIDONE-IODINE
     Dosage: UNK
     Dates: start: 20171117

REACTIONS (1)
  - Deafness neurosensory [Recovered/Resolved]

NARRATIVE: CASE EVENT DATE: 20171214
